FAERS Safety Report 4362294-0 (Version None)
Quarter: 2004Q2

REPORT INFORMATION
  Report Type: 
  Country: None (occurrence: None)
  Receive Date: 20040517
  Receipt Date: 20040505
  Transmission Date: 20050107
  Serious: Yes (Death, Hospitalization)
  Sender: FDA-Public Use
  Company Number: US-JNJFOC-20040402238

PATIENT
  Age: 80 Year
  Sex: Male

DRUGS (4)
  1. DURAGESIC [Suspect]
     Indication: CANCER PAIN
     Dosage: 25 UG/HR, 1 IN 72 HOUR, TRANSDERMAL; 75 UG/HR, 1 IN 72  HOUR, TRANSDERMAL
     Route: 062
     Dates: start: 20031201, end: 20031201
  2. DURAGESIC [Suspect]
     Indication: CANCER PAIN
     Dosage: 25 UG/HR, 1 IN 72 HOUR, TRANSDERMAL; 75 UG/HR, 1 IN 72  HOUR, TRANSDERMAL
     Route: 062
     Dates: start: 20031201, end: 20040101
  3. DURAGESIC [Suspect]
     Indication: CANCER PAIN
     Dosage: 25 UG/HR, 1 IN 72 HOUR, TRANSDERMAL; 75 UG/HR, 1 IN 72  HOUR, TRANSDERMAL
     Route: 062
     Dates: start: 20051001
  4. DURAGESIC [Suspect]

REACTIONS (7)
  - CONTUSION [None]
  - DISCOMFORT [None]
  - FALL [None]
  - LUNG NEOPLASM MALIGNANT [None]
  - PHARMACEUTICAL PRODUCT COMPLAINT [None]
  - PNEUMONIA [None]
  - VOMITING [None]
